FAERS Safety Report 9443584 (Version 3)
Quarter: 2014Q1

REPORT INFORMATION
  Report Type: Report from Study
  Country: US (occurrence: US)
  Receive Date: 20130806
  Receipt Date: 20140121
  Transmission Date: 20141002
  Serious: Yes (Hospitalization, Other)
  Sender: FDA-Public Use
  Company Number: US-ALEXION PHARMACEUTICALS INC.-A201301670

PATIENT
  Age: 6 Year
  Sex: Male

DRUGS (12)
  1. SOLIRIS [Suspect]
     Indication: HAEMOLYTIC URAEMIC SYNDROME
     Dosage: 300 MG, QW
     Route: 042
  2. SOLIRIS [Suspect]
     Dosage: 600 MG, Q2W
     Route: 042
  3. RAPAMUNE [Concomitant]
     Dosage: 1.5 MG, QD
     Route: 048
     Dates: end: 20130725
  4. NORVASC [Concomitant]
     Indication: HYPERTENSION
     Dosage: 2.5 MG, BID
     Route: 048
     Dates: end: 20130725
  5. TENORMIN [Concomitant]
     Dosage: 12.5 MG, BID
     Route: 048
     Dates: end: 20130725
  6. QVAR [Concomitant]
     Dosage: 1 PUFF, PRN
     Dates: end: 20130703
  7. PREDNISONE [Concomitant]
     Dosage: 7.5 MG, QOD
     Route: 048
     Dates: end: 20130725
  8. NASONEX [Concomitant]
     Dosage: 1 SPRAY, QD AT BEDTIME
     Route: 045
     Dates: end: 20130725
  9. BACTRIM [Concomitant]
     Dosage: 9.4 ML, QD AT BEDTIME
     Route: 048
  10. ZYRTEC [Concomitant]
     Dosage: 5 MG, QD AT BEDTIME
     Route: 048
  11. CELLCEPT [Concomitant]
     Dosage: 500MG EVERY MORNING/250MG EVERY NIGHT
  12. THYMOGLOBULIN [Concomitant]
     Dosage: UNK

REACTIONS (12)
  - Nephrotic syndrome [Unknown]
  - Blood urea increased [Not Recovered/Not Resolved]
  - Blood creatinine increased [Not Recovered/Not Resolved]
  - Transplant rejection [Not Recovered/Not Resolved]
  - Hypertension [Unknown]
  - Periorbital oedema [Unknown]
  - Platelet count decreased [Unknown]
  - Renal disorder [Unknown]
  - Haemoglobin decreased [Unknown]
  - Laboratory test abnormal [Unknown]
  - Renal disorder [Unknown]
  - White blood cell count decreased [Unknown]
